FAERS Safety Report 6673327-0 (Version None)
Quarter: 2010Q2

REPORT INFORMATION
  Report Type: 
  Country: None (occurrence: None)
  Receive Date: 20100408
  Receipt Date: 20100401
  Transmission Date: 20101027
  Serious: Yes (Other)
  Sender: FDA-Public Use
  Company Number: RU-GENENTECH-299683

PATIENT
  Sex: Female

DRUGS (7)
  1. MABTHERA [Suspect]
     Indication: RHEUMATOID ARTHRITIS
     Dosage: 1000 MG, Q2W
     Route: 042
     Dates: start: 20080703, end: 20100302
  2. METHOTREXATE [Suspect]
     Indication: RHEUMATOID ARTHRITIS
     Dosage: 15 MG, UNK
     Route: 065
  3. SOTALEX [Concomitant]
     Indication: HYPERTENSION
     Dosage: UNK
  4. ARIFON [Concomitant]
     Indication: HYPERTENSION
     Dosage: UNK
  5. DIOVAN [Concomitant]
     Indication: HYPERTENSION
     Dosage: UNK
  6. CARDIOMAGNYL [Concomitant]
     Indication: HYPERTENSION
     Dosage: UNK
  7. TORVACARD [Concomitant]
     Indication: DRUG USE FOR UNKNOWN INDICATION
     Dosage: UNK

REACTIONS (3)
  - ASCITES [None]
  - COLITIS [None]
  - OVARIAN EPITHELIAL CANCER [None]
